FAERS Safety Report 25552444 (Version 2)
Quarter: 2025Q3

REPORT INFORMATION
  Report Type: Spontaneous
  Country: US (occurrence: US)
  Receive Date: 20250715
  Receipt Date: 20250716
  Transmission Date: 20251021
  Serious: Yes (Hospitalization)
  Sender: ROCHE
  Company Number: US-ROCHE-10000336220

PATIENT
  Age: 3 Year
  Sex: Male

DRUGS (3)
  1. HEMLIBRA [Suspect]
     Active Substance: EMICIZUMAB-KXWH
     Indication: Factor VIII deficiency
     Dosage: STRENGTH: 60MG/0.4ML
     Route: 058
     Dates: start: 202401
  2. HEMLIBRA [Suspect]
     Active Substance: EMICIZUMAB-KXWH
     Dosage: STRENGTH: 60MG/0.4ML
     Route: 058
     Dates: start: 202401
  3. ELOCTATE [Concomitant]
     Active Substance: EFMOROCTOCOG ALFA

REACTIONS (2)
  - Gastric haemorrhage [Unknown]
  - Haematemesis [Unknown]

NARRATIVE: CASE EVENT DATE: 20250704
